FAERS Safety Report 5384215-4 (Version None)
Quarter: 2007Q3

REPORT INFORMATION
  Report Type: 
  Country: None (occurrence: None)
  Receive Date: 20070711
  Receipt Date: 20070706
  Transmission Date: 20080115
  Serious: Yes (Hospitalization)
  Sender: FDA-Public Use
  Company Number: B0478624A

PATIENT
  Age: 68 Year
  Sex: Male
  Weight: 63 kg

DRUGS (1)
  1. SEROXAT [Suspect]
     Indication: PANIC REACTION
     Route: 048
     Dates: start: 20050215, end: 20060301

REACTIONS (4)
  - ABNORMAL DREAMS [None]
  - AGITATION [None]
  - HEADACHE [None]
  - RAPID EYE MOVEMENTS SLEEP ABNORMAL [None]
